FAERS Safety Report 6341725-0 (Version None)
Quarter: 2009Q3

REPORT INFORMATION
  Report Type: 
  Country: None (occurrence: None)
  Receive Date: 20090902
  Receipt Date: 20090902
  Transmission Date: 20100115
  Serious: No
  Sender: FDA-Public Use
  Company Number: None

PATIENT
  Age: 35 Year
  Sex: Female
  Weight: 81.6475 kg

DRUGS (1)
  1. BUPROPION HCL [Suspect]
     Dosage: ONE PILL PER DAY PO
     Route: 048
     Dates: start: 20090816, end: 20090901

REACTIONS (9)
  - AGITATION [None]
  - HEADACHE [None]
  - INSOMNIA [None]
  - IRRITABILITY [None]
  - PANIC ATTACK [None]
  - PRODUCT QUALITY ISSUE [None]
  - PRODUCT SUBSTITUTION ISSUE [None]
  - SPEECH DISORDER [None]
  - THINKING ABNORMAL [None]
